FAERS Safety Report 6057710-2 (Version None)
Quarter: 2009Q1

REPORT INFORMATION
  Report Type: 
  Country: None (occurrence: None)
  Receive Date: 20090129
  Receipt Date: 20090122
  Transmission Date: 20090719
  Serious: Yes (Other)
  Sender: FDA-Public Use
  Company Number: MY-PFIZER INC-2009158785

PATIENT

DRUGS (1)
  1. CELEBREX [Suspect]
     Route: 048
     Dates: start: 20090120, end: 20090121

REACTIONS (2)
  - NASOPHARYNGEAL CANCER STAGE IV [None]
  - RENAL FAILURE [None]
